FAERS Safety Report 17269461 (Version 2)
Quarter: 2021Q1

REPORT INFORMATION
  Report Type: Report from Study
  Country: ZA (occurrence: ZA)
  Receive Date: 20200114
  Receipt Date: 20210211
  Transmission Date: 20210419
  Serious: Yes (Other)
  Sender: FDA-Public Use
  Company Number: NVSC2020ZA004957

PATIENT
  Age: 61 Year
  Sex: Female

DRUGS (1)
  1. TUVIGIN [Suspect]
     Active Substance: FINGOLIMOD HYDROCHLORIDE
     Indication: RELAPSING-REMITTING MULTIPLE SCLEROSIS
     Dosage: 0.5 MG, QD
     Route: 048
     Dates: start: 20180808

REACTIONS (9)
  - Cognitive disorder [Unknown]
  - Gait disturbance [Unknown]
  - Atrophy of globe [Unknown]
  - Blood chloride decreased [Unknown]
  - Vitamin B12 decreased [Unknown]
  - Alanine aminotransferase increased [Unknown]
  - Expanded disability status scale score increased [Unknown]
  - Iron deficiency [Unknown]
  - Lymphocyte count decreased [Unknown]

NARRATIVE: CASE EVENT DATE: 20190828
